FAERS Safety Report 7179815-5 (Version None)
Quarter: 2010Q4

REPORT INFORMATION
  Report Type: 
  Country: None (occurrence: None)
  Receive Date: 20101221
  Receipt Date: 20101215
  Transmission Date: 20110411
  Serious: Yes (Other)
  Sender: FDA-Public Use
  Company Number: US-PFIZER INC-2010023371

PATIENT
  Sex: Female
  Weight: 61.7 kg

DRUGS (10)
  1. SUTENT [Suspect]
     Indication: RENAL CELL CARCINOMA
     Dosage: 25 MG, 1X/DAY
     Route: 048
     Dates: start: 20100205
  2. SUTENT [Suspect]
     Indication: LUNG NEOPLASM MALIGNANT
     Dosage: 25 MG, UNK
     Dates: start: 20100219
  3. LISINOPRIL [Concomitant]
     Dosage: UNK
     Route: 048
  4. WARFARIN [Concomitant]
     Dosage: UNK
     Route: 048
  5. AMLODIPINE BESILATE [Concomitant]
     Dosage: UNK
     Route: 048
  6. FUROSEMIDE [Concomitant]
     Dosage: UNK
  7. AMIODARONE [Concomitant]
     Dosage: UNK
  8. METOPROLOL [Concomitant]
     Dosage: UNK
  9. CALCIUM [Concomitant]
     Dosage: UNK
  10. FISH OIL [Concomitant]
     Dosage: UNK

REACTIONS (2)
  - MUSCULAR WEAKNESS [None]
  - THYROID FUNCTION TEST ABNORMAL [None]
